FAERS Safety Report 7275454-6 (Version None)
Quarter: 2011Q1

REPORT INFORMATION
  Report Type: 
  Country: None (occurrence: None)
  Receive Date: 20110202
  Receipt Date: 20110202
  Transmission Date: 20110831
  Serious: No
  Sender: FDA-Public Use
  Company Number: None

PATIENT
  Age: 53 Year
  Sex: Male
  Weight: 79.3795 kg

DRUGS (1)
  1. CHANTIX [Suspect]
     Indication: SMOKING CESSATION THERAPY
     Dosage: ONE A DAY DENTAL
     Route: 004
     Dates: start: 20090617, end: 20090630

REACTIONS (3)
  - FEELING ABNORMAL [None]
  - DEPRESSION [None]
  - ECONOMIC PROBLEM [None]
